FAERS Safety Report 24957736 (Version 1)
Quarter: 2025Q1

REPORT INFORMATION
  Report Type: Spontaneous
  Country: FR (occurrence: FR)
  Receive Date: 20250212
  Receipt Date: 20250212
  Transmission Date: 20250408
  Serious: Yes (Death)
  Sender: JOHNSON AND JOHNSON
  Company Number: FR-JNJFOC-20250217640

PATIENT
  Sex: Female
  Weight: 46 kg

DRUGS (4)
  1. RYBREVANT [Suspect]
     Active Substance: AMIVANTAMAB-VMJW
     Indication: Non-small cell lung cancer metastatic
     Route: 065
     Dates: end: 20250106
  2. OSIMERTINIB [Concomitant]
     Active Substance: OSIMERTINIB
  3. CARBOPLATIN [Concomitant]
     Active Substance: CARBOPLATIN
     Dates: end: 20250108
  4. PEMETREXED [Concomitant]
     Active Substance: PEMETREXED
     Dates: end: 20250108

REACTIONS (4)
  - Congenital aplasia [Fatal]
  - Non-small cell lung cancer [Fatal]
  - Dehydration [Fatal]
  - Weight decreased [Unknown]
